FAERS Safety Report 18253405 (Version 1)
Quarter: 2020Q3

REPORT INFORMATION
  Report Type: Spontaneous
  Country: US (occurrence: US)
  Receive Date: 20200910
  Receipt Date: 20200910
  Transmission Date: 20201103
  Serious: No
  Sender: FDA-Public Use
  Company Number: US-ASTRAZENECA-2020SF12322

PATIENT
  Sex: Female
  Weight: 73.9 kg

DRUGS (1)
  1. BYDUREON BCISE [Suspect]
     Active Substance: EXENATIDE
     Indication: BLOOD GLUCOSE ABNORMAL
     Route: 058
     Dates: start: 202003

REACTIONS (5)
  - Glycosylated haemoglobin decreased [Unknown]
  - Injection site mass [Unknown]
  - Injection site haemorrhage [Unknown]
  - Weight decreased [Unknown]
  - Injection site pain [Unknown]
